FAERS Safety Report 8318149-X (Version None)
Quarter: 2012Q2

REPORT INFORMATION
  Report Type: 
  Country: None (occurrence: None)
  Receive Date: 20120427
  Receipt Date: 20120417
  Transmission Date: 20120825
  Serious: Yes (Hospitalization)
  Sender: FDA-Public Use
  Company Number: US-ROCHE-1060566

PATIENT
  Sex: Male

DRUGS (7)
  1. CLINDAMYCIN [Concomitant]
     Dates: start: 20110101
  2. AVASTIN [Suspect]
     Route: 065
     Dates: start: 20120329
  3. KETOCONAZOLE [Concomitant]
     Dates: start: 20110101
  4. ACETAMINOPHEN [Concomitant]
     Dates: start: 20110101
  5. LEVETIRACETAM [Concomitant]
     Dates: start: 20100101
  6. AVASTIN [Suspect]
     Indication: MALIGNANT GLIOMA
     Route: 065
     Dates: start: 20111013
  7. MOMETASONE FUROATE [Concomitant]
     Dates: start: 20120101

REACTIONS (1)
  - CONVULSION [None]
